FAERS Safety Report 7214682-2 (Version None)
Quarter: 2011Q1

REPORT INFORMATION
  Report Type: 
  Country: None (occurrence: None)
  Receive Date: 20110104
  Receipt Date: 20110104
  Transmission Date: 20110831
  Serious: Yes (Life-Threatening)
  Sender: FDA-Public Use
  Company Number: None

PATIENT
  Age: 61 Year
  Sex: Male
  Weight: 79.3795 kg

DRUGS (1)
  1. RAPAMUNE [Suspect]
     Indication: TRANSPLANT REJECTION
     Dosage: 2 MG ONE DAILY PO
     Route: 048
     Dates: start: 20090916, end: 20100212

REACTIONS (6)
  - HAEMOGLOBIN DECREASED [None]
  - ASTHENIA [None]
  - PAIN IN EXTREMITY [None]
  - DYSPNOEA [None]
  - BRAIN NATRIURETIC PEPTIDE INCREASED [None]
  - RED BLOOD CELL SEDIMENTATION RATE INCREASED [None]
